FAERS Safety Report 6166951-5 (Version None)
Quarter: 2009Q2

REPORT INFORMATION
  Report Type: 
  Country: None (occurrence: None)
  Receive Date: 20090424
  Receipt Date: 20090115
  Transmission Date: 20091009
  Serious: Yes (Hospitalization, Other)
  Sender: FDA-Public Use
  Company Number: US-PFIZER INC-2008078517

PATIENT
  Sex: Male
  Weight: 61 kg

DRUGS (4)
  1. DILANTIN [Suspect]
     Indication: CONVULSION
     Route: 048
  2. PHENYTOIN AND PHENYTOIN SODIUM [Suspect]
     Dosage: 500 MG, UNK
     Route: 042
     Dates: start: 20080207, end: 20080207
  3. BENADRYL [Concomitant]
     Indication: PRURITUS
  4. AUGMENTIN '125' [Concomitant]

REACTIONS (5)
  - ANTICONVULSANT DRUG LEVEL BELOW THERAPEUTIC [None]
  - HEPATITIS C [None]
  - STEVENS-JOHNSON SYNDROME [None]
  - UPPER RESPIRATORY TRACT INFECTION [None]
  - URINARY TRACT INFECTION [None]
